FAERS Safety Report 6404208-5 (Version None)
Quarter: 2009Q4

REPORT INFORMATION
  Report Type: 
  Country: None (occurrence: None)
  Receive Date: 20091016
  Receipt Date: 20091005
  Transmission Date: 20100525
  Serious: Yes (Hospitalization)
  Sender: FDA-Public Use
  Company Number: JP-PFIZER INC-2009278634

PATIENT
  Age: 45 Year

DRUGS (2)
  1. ZITHROMAC SR [Suspect]
     Indication: PERIODONTITIS
     Dosage: UNK
     Route: 048
     Dates: start: 20091001, end: 20091001
  2. BIOFERMIN [Concomitant]

REACTIONS (3)
  - ASTHENIA [None]
  - FEELING ABNORMAL [None]
  - VOMITING [None]
